FAERS Safety Report 7600440-3 (Version None)
Quarter: 2011Q3

REPORT INFORMATION
  Report Type: 
  Country: None (occurrence: None)
  Receive Date: 20110711
  Receipt Date: 20110607
  Transmission Date: 20111222
  Serious: Yes (Hospitalization)
  Sender: FDA-Public Use
  Company Number: PHHO2009AT00510

PATIENT
  Sex: Female
  Weight: 98 kg

DRUGS (3)
  1. EBETREXAT (METHOTREXATE SODIUM) [Concomitant]
     Indication: RHEUMATOID ARTHRITIS
     Dosage: 75 MG
     Route: 048
     Dates: start: 20061101
  2. THYREX [Concomitant]
     Indication: HYPOTHYROIDISM
     Dosage: 1 MG
     Route: 048
     Dates: start: 19970101
  3. ILARIS [Suspect]
     Indication: RHEUMATOID ARTHRITIS
     Dosage: 300 MG Q 4 WEEKS
     Route: 058
     Dates: start: 20070626, end: 20081212

REACTIONS (1)
  - ERYSIPELAS [None]
